FAERS Safety Report 18609694 (Version 1)
Quarter: 2020Q4

REPORT INFORMATION
  Report Type: Spontaneous
  Country: DE (occurrence: DE)
  Receive Date: 20201214
  Receipt Date: 20201214
  Transmission Date: 20210114
  Serious: Yes (Other)
  Sender: FDA-Public Use
  Company Number: DE-TEVA-2020-DE-1856877

PATIENT
  Age: 60 Year
  Sex: Male
  Weight: 105 kg

DRUGS (2)
  1. CIPROFLOXACIN. [Suspect]
     Active Substance: CIPROFLOXACIN
     Indication: BLADDER CATHETERISATION
     Dosage: 1000 MILLIGRAM DAILY;
     Route: 048
     Dates: start: 20201028, end: 20201102
  2. CIPROFLOXACIN. [Suspect]
     Active Substance: CIPROFLOXACIN
     Indication: INFECTION

REACTIONS (9)
  - Panic attack [Unknown]
  - Insomnia [Unknown]
  - Thrombosis [Not Recovered/Not Resolved]
  - Asthenia [Unknown]
  - Restlessness [Unknown]
  - Arthralgia [Not Recovered/Not Resolved]
  - Tendon pain [Not Recovered/Not Resolved]
  - Tachycardia [Not Recovered/Not Resolved]
  - Hypertension [Not Recovered/Not Resolved]

NARRATIVE: CASE EVENT DATE: 20201013
